FAERS Safety Report 5795607-3 (Version None)
Quarter: 2008Q2

REPORT INFORMATION
  Report Type: 
  Country: None (occurrence: None)
  Receive Date: 20080630
  Receipt Date: 20080620
  Transmission Date: 20081010
  Serious: Yes (Other)
  Sender: FDA-Public Use
  Company Number: BR-ABBOTT-08P-020-0459405-00

PATIENT
  Sex: Male

DRUGS (3)
  1. HUMIRA [Suspect]
     Indication: JUVENILE ARTHRITIS
     Route: 058
     Dates: start: 20030401, end: 20040101
  2. HUMIRA [Suspect]
     Dates: start: 20080301, end: 20080530
  3. KETOPROFEN [Concomitant]
     Indication: ANALGESIA

REACTIONS (3)
  - ANAEMIA [None]
  - JOINT ARTHROPLASTY [None]
  - RENAL FAILURE [None]
